FAERS Safety Report 4358423-5 (Version None)
Quarter: 2004Q2

REPORT INFORMATION
  Report Type: 
  Country: None (occurrence: None)
  Receive Date: 20040514
  Receipt Date: 20040422
  Transmission Date: 20050107
  Serious: Yes (Other)
  Sender: FDA-Public Use
  Company Number: US-ROCHE-365445

PATIENT
  Age: 54 Year
  Sex: Female
  Weight: 61.2 kg

DRUGS (2)
  1. PEGASYS [Suspect]
     Indication: HEPATITIS C
     Dosage: DOSAGE REGIMEN REPORTED AS WEEKLY.
     Route: 058
     Dates: start: 20030624, end: 20040419
  2. COPEGUS [Suspect]
     Indication: HEPATITIS C
     Dosage: STRENGTH REPORTED AS 200 X5 AND DOSAGE REGIMEN AS DAILY.
     Route: 048
     Dates: start: 20030624, end: 20040419

REACTIONS (3)
  - BREAST CANCER [None]
  - BREAST CANCER FEMALE [None]
  - BREAST DISORDER [None]
